FAERS Safety Report 7070389-6 (Version None)
Quarter: 2010Q4

REPORT INFORMATION
  Report Type: 
  Country: None (occurrence: None)
  Receive Date: 20101029
  Receipt Date: 20101020
  Transmission Date: 20110411
  Serious: Yes (Other)
  Sender: FDA-Public Use
  Company Number: US-BIOGENIDEC-2008BI034350

PATIENT
  Age: 42 Year
  Sex: Female

DRUGS (2)
  1. AVONEX [Suspect]
     Indication: MULTIPLE SCLEROSIS
     Route: 030
     Dates: start: 19970530, end: 19981211
  2. AVONEX [Suspect]
     Route: 030
     Dates: start: 20090108

REACTIONS (3)
  - HYSTERECTOMY [None]
  - NON-HODGKIN'S LYMPHOMA STAGE I [None]
  - RENAL FAILURE ACUTE [None]
